FAERS Safety Report 5601025-0 (Version None)
Quarter: 2008Q1

REPORT INFORMATION
  Report Type: 
  Country: None (occurrence: None)
  Receive Date: 20080124
  Receipt Date: 20080121
  Transmission Date: 20080703
  Serious: Yes (Hospitalization)
  Sender: FDA-Public Use
  Company Number: FR-ELI_LILLY_AND_COMPANY-FR200801004124

PATIENT
  Sex: Female

DRUGS (4)
  1. ZYPREXA [Suspect]
     Dosage: 5 MG, UNKNOWN
     Route: 048
  2. CORVASAL [Concomitant]
     Dosage: 2 MG, UNKNOWN
     Route: 048
  3. ARICEPT [Concomitant]
     Dosage: 10 MG, UNKNOWN
     Route: 048
  4. SERESTA [Concomitant]
     Dosage: UNK, UNKNOWN
     Route: 065

REACTIONS (3)
  - FALL [None]
  - FRACTURE [None]
  - ORTHOSTATIC HYPOTENSION [None]
